FAERS Safety Report 11130616 (Version 1)
Quarter: 2015Q2

REPORT INFORMATION
  Report Type: Spontaneous
  Country: US (occurrence: None)
  Receive Date: 20150520
  Receipt Date: 20150520
  Transmission Date: 20150821
  Serious: Yes (Other)
  Sender: FDA-Public Use
  Company Number: 115299

PATIENT
  Age: 77 Year
  Sex: Male
  Weight: 58.97 kg

DRUGS (3)
  1. MENTHOLATUM [Suspect]
     Active Substance: CAMPHOR (SYNTHETIC)\MENTHOL
     Indication: ANALGESIC THERAPY
     Route: 061
     Dates: start: 201503
  2. MENTHOLATUM [Suspect]
     Active Substance: CAMPHOR (SYNTHETIC)\MENTHOL
     Indication: THERAPEUTIC SKIN CARE TOPICAL
     Route: 061
     Dates: start: 201503
  3. BLOOD PRESSURE MEDICATION [Concomitant]
     Active Substance: UNSPECIFIED INGREDIENT

REACTIONS (4)
  - Burning sensation [None]
  - Nasal congestion [None]
  - Hypersensitivity [None]
  - Nasal discomfort [None]

NARRATIVE: CASE EVENT DATE: 201503
